FAERS Safety Report 16122728 (Version 2)
Quarter: 2019Q2

REPORT INFORMATION
  Report Type: Spontaneous
  Country: US (occurrence: US)
  Receive Date: 20190327
  Receipt Date: 20190408
  Transmission Date: 20190711
  Serious: No
  Sender: FDA-Public Use
  Company Number: US-AMGEN-USASP2019047013

PATIENT
  Age: 32 Year
  Sex: Female
  Weight: 52.4 kg

DRUGS (1)
  1. NEULASTA [Suspect]
     Active Substance: PEGFILGRASTIM
     Indication: HODGKIN^S DISEASE NODULAR SCLEROSIS
     Dosage: 6 MILLIGRAM, Q2WK
     Route: 065

REACTIONS (3)
  - Off label use [Unknown]
  - Application site haemorrhage [Unknown]
  - Unintentional medical device removal [Unknown]

NARRATIVE: CASE EVENT DATE: 20190322
